FAERS Safety Report 17362214 (Version 1)
Quarter: 2020Q1

REPORT INFORMATION
  Report Type: Spontaneous
  Country: FR (occurrence: FR)
  Receive Date: 20200203
  Receipt Date: 20200203
  Transmission Date: 20200409
  Serious: Yes (Death)
  Sender: FDA-Public Use
  Company Number: FR-PFIZER INC-2020038726

PATIENT
  Age: 41 Year
  Sex: Male

DRUGS (11)
  1. ALPRAZOLAM. [Suspect]
     Active Substance: ALPRAZOLAM
     Dosage: UNK
     Route: 065
  2. METHADONE [Suspect]
     Active Substance: METHADONE HYDROCHLORIDE
     Dosage: 60 MG, 1X/DAY
     Route: 065
  3. CARFENTANIL [Suspect]
     Active Substance: CARFENTANIL
     Dosage: 2.5ML SYRINGE INJECTED UNDER HIS TONGUE
     Route: 060
  4. SKENAN [Suspect]
     Active Substance: MORPHINE SULFATE
     Dosage: UNK
     Route: 065
  5. DEXTROMETHORPHAN [Suspect]
     Active Substance: DEXTROMETHORPHAN
     Dosage: 2.5ML SYRINGE INJECTED UNDER HIS TONGUE
     Route: 060
  6. METHAMPHETAMINE HCL [Suspect]
     Active Substance: METHAMPHETAMINE HYDROCHLORIDE
     Dosage: 2.5ML SYRINGE INJECTED UNDER HIS TONGUE
     Route: 060
  7. ALCOHOL. [Suspect]
     Active Substance: ALCOHOL
     Dosage: UNK
  8. CANNABIS [Suspect]
     Active Substance: CANNABIS SATIVA SUBSP. INDICA TOP
     Dosage: UNK
  9. AMPHETAMINE [Suspect]
     Active Substance: AMPHETAMINE
     Dosage: UNK
     Route: 065
  10. KETAMINE [Suspect]
     Active Substance: KETAMINE
     Dosage: 2.5ML SYRINGE INJECTED UNDER HIS TONGUE
     Route: 060
  11. ZOLPIDEM [Suspect]
     Active Substance: ZOLPIDEM TARTRATE
     Dosage: 2.5ML SYRINGE INJECTED UNDER HIS TONGUE
     Route: 060

REACTIONS (1)
  - Toxicity to various agents [Fatal]
